FAERS Safety Report 24528566 (Version 1)
Quarter: 2024Q4

REPORT INFORMATION
  Report Type: Spontaneous
  Country: US (occurrence: None)
  Receive Date: 20241018
  Receipt Date: 20241018
  Transmission Date: 20250115
  Serious: Yes (Hospitalization)
  Sender: Public
  Company Number: None

PATIENT
  Sex: Male

DRUGS (11)
  1. PULMOZYME [Suspect]
     Active Substance: DORNASE ALFA
     Indication: Cystic fibrosis
     Route: 055
     Dates: start: 20160527
  2. ALBUTEROL SULFATE [Concomitant]
  3. CIPROFLOXACN TAB 750MG [Concomitant]
  4. ENSURE ACTIV LIO HP [Concomitant]
  5. ENSURE [Concomitant]
     Active Substance: AMINO ACIDS\DEXTROSE\ELECTROLYTES NOS\SOYBEAN OIL\VITAMINS
  6. FLORASTOR CAP 250MG [Concomitant]
  7. MULTIVITAMIN TAB MEN [Concomitant]
  8. MVW D5000 [Concomitant]
  9. OMEPRAZOLE [Concomitant]
     Active Substance: OMEPRAZOLE
  10. OMEPRAZOLE POW [Concomitant]
  11. PULMOZYME SOL 1 MG/ML [Concomitant]

REACTIONS (1)
  - Nonspecific reaction [None]
